FAERS Safety Report 6417527-3 (Version None)
Quarter: 2009Q4

REPORT INFORMATION
  Report Type: 
  Country: None (occurrence: None)
  Receive Date: 20091028
  Receipt Date: 20091016
  Transmission Date: 20100525
  Serious: Yes (Hospitalization)
  Sender: FDA-Public Use
  Company Number: FR-PFIZER INC-2006091601

PATIENT
  Age: 59 Year

DRUGS (8)
  1. EXEMESTANE [Suspect]
     Indication: BREAST CANCER
     Dosage: 25 MG, 1X/DAY
     Route: 048
     Dates: start: 20030906, end: 20060401
  2. METFORMIN HCL [Concomitant]
     Route: 048
     Dates: start: 20021001, end: 20060301
  3. TAHOR [Concomitant]
     Route: 048
     Dates: start: 20040101
  4. KARDEGIC [Concomitant]
     Route: 065
     Dates: start: 20030901, end: 20060315
  5. TRIATEC [Concomitant]
     Route: 048
     Dates: start: 20021001
  6. ACTONEL [Concomitant]
     Route: 048
     Dates: start: 20040101
  7. AVANDIA [Concomitant]
     Route: 048
     Dates: start: 20041001
  8. GLUCOPHAGE [Concomitant]
     Route: 048
     Dates: start: 20060301

REACTIONS (2)
  - PULMONARY EMBOLISM [None]
  - UPPER LIMB FRACTURE [None]
